FAERS Safety Report 15711281 (Version 1)
Quarter: 2018Q4

REPORT INFORMATION
  Report Type: Spontaneous
  Country: ES (occurrence: ES)
  Receive Date: 20181211
  Receipt Date: 20181211
  Transmission Date: 20190205
  Serious: Yes (Hospitalization)
  Sender: FDA-Public Use
  Company Number: ES-MYLANLABS-2018M1091465

PATIENT
  Age: 57 Year
  Sex: Male

DRUGS (2)
  1. LINEZOLID. [Suspect]
     Active Substance: LINEZOLID
     Indication: INTERVERTEBRAL DISCITIS
     Route: 065
  2. ERTAPENEM. [Suspect]
     Active Substance: ERTAPENEM SODIUM
     Indication: INTERVERTEBRAL DISCITIS
     Route: 065

REACTIONS (3)
  - Bone marrow failure [Recovering/Resolving]
  - Metabolic acidosis [Recovering/Resolving]
  - Off label use [Recovering/Resolving]
